FAERS Safety Report 8360315-1 (Version None)
Quarter: 2012Q2

REPORT INFORMATION
  Report Type: 
  Country: None (occurrence: None)
  Receive Date: 20120515
  Receipt Date: 20120510
  Transmission Date: 20120825
  Serious: Yes (Hospitalization)
  Sender: FDA-Public Use
  Company Number: US-B.I. PHARMACEUTICALS,INC./RIDGEFIELD-2012-BP-06739BP

PATIENT
  Sex: Female

DRUGS (11)
  1. PRILOSEC [Concomitant]
     Indication: GASTROOESOPHAGEAL REFLUX DISEASE
     Route: 048
     Dates: start: 20020101
  2. ASCORBIC ACID [Concomitant]
     Indication: SUPPLEMENTATION THERAPY
     Route: 048
     Dates: start: 19970101
  3. SPIRIVA [Suspect]
     Indication: CHRONIC OBSTRUCTIVE PULMONARY DISEASE
     Dosage: 18 MCG
     Route: 055
     Dates: start: 20120215, end: 20120409
  4. ALBUTEROL [Concomitant]
     Indication: ASTHMA
     Route: 055
     Dates: start: 20100101
  5. GINGER [Concomitant]
     Indication: VERTIGO
     Route: 048
     Dates: start: 20070101
  6. MAGNESIUM [Concomitant]
     Indication: MUSCLE SPASMS
     Route: 048
     Dates: start: 20120201
  7. ACTONEL [Concomitant]
     Indication: OSTEOPOROSIS
     Route: 048
     Dates: start: 19970101
  8. CALCIUM [Concomitant]
     Indication: SUPPLEMENTATION THERAPY
     Route: 048
     Dates: start: 19920101
  9. THEOPHYLLINE [Concomitant]
     Indication: ASTHMA
     Dosage: 400 MG
     Route: 048
     Dates: start: 19820101
  10. POTASSIUM CHLORIDE [Concomitant]
     Indication: SUPPLEMENTATION THERAPY
     Route: 048
     Dates: start: 20100101
  11. MULTI-VITAMIN [Concomitant]
     Indication: SUPPLEMENTATION THERAPY
     Route: 048
     Dates: start: 19920101

REACTIONS (7)
  - BRONCHOSPASM PARADOXICAL [None]
  - PRURITUS GENERALISED [None]
  - COUGH [None]
  - HEADACHE [None]
  - DRY MOUTH [None]
  - SKIN EXFOLIATION [None]
  - DYSPNOEA [None]
